FAERS Safety Report 9031457 (Version 2)
Quarter: 2013Q1

REPORT INFORMATION
  Report Type: Report from Study
  Country: CA (occurrence: CA)
  Receive Date: 20130124
  Receipt Date: 20130306
  Transmission Date: 20140127
  Serious: Yes (Hospitalization)
  Sender: FDA-Public Use
  Company Number: CA-ROCHE-1143615

PATIENT
  Age: 57 None
  Sex: Male
  Weight: 81.6 kg

DRUGS (8)
  1. ACTEMRA [Suspect]
     Indication: RHEUMATOID ARTHRITIS
     Route: 042
     Dates: start: 20120319, end: 20121004
  2. ACTEMRA [Suspect]
     Route: 042
     Dates: start: 20120711
  3. ACTEMRA [Suspect]
     Route: 042
     Dates: start: 20120808
  4. METHOTREXATE [Concomitant]
     Route: 065
     Dates: end: 2012
  5. DICLOFENAC [Concomitant]
  6. PLAQUENIL [Concomitant]
  7. NOVO-RABEPRAZOLE EC [Concomitant]
  8. FOLIC ACID [Concomitant]

REACTIONS (9)
  - Ankle operation [Recovered/Resolved]
  - Cheilitis [Recovered/Resolved]
  - Urticaria [Not Recovered/Not Resolved]
  - Infection [Recovered/Resolved]
  - Skin ulcer [Not Recovered/Not Resolved]
  - Skin ulcer [Not Recovered/Not Resolved]
  - Skin ulcer [Recovered/Resolved]
  - Scratch [Recovered/Resolved]
  - Blister [Recovered/Resolved]
